FAERS Safety Report 19365893 (Version 1)
Quarter: 2021Q2

REPORT INFORMATION
  Report Type: Spontaneous
  Country: US (occurrence: US)
  Receive Date: 20210603
  Receipt Date: 20210603
  Transmission Date: 20210717
  Serious: Yes (Other)
  Sender: FDA-Public Use
  Company Number: US-GLAXOSMITHKLINE-US2021GSK118653

PATIENT
  Sex: Female

DRUGS (3)
  1. ZANTAC [Suspect]
     Active Substance: RANITIDINE HYDROCHLORIDE
     Dosage: OCCASIONAL|UNKNOWN AT THIS TIME|PRESCRIPTION
     Route: 065
     Dates: start: 199607, end: 199802
  2. ZANTAC [Suspect]
     Active Substance: RANITIDINE HYDROCHLORIDE
     Dosage: UNK UNK, QD
     Route: 065
     Dates: start: 199607, end: 199802
  3. ZANTAC [Suspect]
     Active Substance: RANITIDINE HYDROCHLORIDE
     Dosage: OCCASIONAL|UNKNOWN AT THIS TIME|PRESCRIPTION
     Route: 065
     Dates: start: 199607, end: 199802

REACTIONS (1)
  - Breast cancer [Unknown]
